FAERS Safety Report 8893508 (Version 1)
Quarter: 2012Q4

REPORT INFORMATION
  Report Type: 
  Country: TR (occurrence: TR)
  Receive Date: 20121108
  Receipt Date: 20121108
  Transmission Date: 20130627
  Serious: Yes (Other)
  Sender: FDA-Public Use
  Company Number: PHBS2007TR02730

PATIENT
  Age: 39 Year
  Sex: Male

DRUGS (5)
  1. OCTREOTIDE [Suspect]
     Indication: ACROMEGALY
     Dosage: 50 ug, TID
     Route: 058
  2. OCTREOTIDE [Suspect]
     Dosage: 100 ug, TID
     Route: 058
  3. OCTREOTIDE [Suspect]
     Dosage: 150 ug, QD
     Route: 058
  4. INSULIN [Concomitant]
     Indication: DIABETIC KETOACIDOSIS
     Dosage: 1.5 U, /kg / d
  5. INSULIN [Concomitant]
     Dosage: 0.7 U /kg / d

REACTIONS (4)
  - Adenoma benign [Unknown]
  - Hypopituitarism [Recovering/Resolving]
  - Bradycardia [Not Recovered/Not Resolved]
  - Blood pressure decreased [Unknown]
